FAERS Safety Report 9863662 (Version 2)
Quarter: 2014Q1

REPORT INFORMATION
  Report Type: Spontaneous
  Country: US (occurrence: US)
  Receive Date: 20140203
  Receipt Date: 20140203
  Transmission Date: 20141002
  Serious: No
  Sender: FDA-Public Use
  Company Number: US-GILEAD-2013-0074224

PATIENT
  Age: 10 Year
  Sex: Male
  Weight: 36.7 kg

DRUGS (10)
  1. CAYSTON [Suspect]
     Indication: PRODUCT USED FOR UNKNOWN INDICATION
     Dosage: UNK
     Dates: start: 20130418
  2. LEVOQUIN [Suspect]
     Indication: PRODUCT USED FOR UNKNOWN INDICATION
     Dosage: UNK
     Route: 055
     Dates: end: 20130423
  3. BACTRIM [Concomitant]
     Dosage: UNK
     Dates: start: 201304, end: 201304
  4. CREON [Concomitant]
     Indication: ENZYME ABNORMALITY
     Dosage: UNK
  5. FLONASE [Concomitant]
     Dosage: 1 DF, UNK
     Route: 045
  6. VITAMIN A                          /00056001/ [Concomitant]
     Dosage: 1 DF, QD
     Route: 048
  7. VITAMIN D NOS [Concomitant]
     Dosage: 1 DF, QD
     Route: 048
  8. VITAMIN E                          /00110501/ [Concomitant]
     Dosage: 1 DF, QD
     Route: 048
  9. VITAMIN K NOS [Concomitant]
     Dosage: 1 DF, QD
     Route: 048
  10. PRILOSEC                           /00661201/ [Concomitant]
     Dosage: 20 MG, QD
     Route: 048

REACTIONS (3)
  - Erythema [Recovered/Resolved]
  - Pruritus [Recovered/Resolved]
  - Blister [Recovered/Resolved]
